FAERS Safety Report 9765774 (Version 2)
Quarter: 2014Q2

REPORT INFORMATION
  Report Type: Spontaneous
  Country: US (occurrence: US)
  Receive Date: 20131217
  Receipt Date: 20140522
  Transmission Date: 20141212
  Serious: No
  Sender: FDA-Public Use
  Company Number: US-BIOGENIDEC-2013BI110708

PATIENT
  Age: 71 Year
  Sex: Female

DRUGS (9)
  1. TECFIDERA [Suspect]
     Indication: MULTIPLE SCLEROSIS
     Route: 048
     Dates: start: 20130608, end: 20130614
  2. TECFIDERA [Suspect]
     Indication: MULTIPLE SCLEROSIS
     Route: 048
     Dates: start: 20130615
  3. TECFIDERA [Suspect]
     Indication: MULTIPLE SCLEROSIS
     Route: 048
     Dates: start: 20140128
  4. AMLODIPINE BESY-BENAZEPRIL HCL [Concomitant]
  5. ASPIR-LOW [Concomitant]
  6. COREG [Concomitant]
  7. LOSARTAN [Concomitant]
  8. POTASSIUM [Concomitant]
  9. TYLENOL [Concomitant]

REACTIONS (1)
  - Toothache [Not Recovered/Not Resolved]
